FAERS Safety Report 7843652 (Version 3)
Quarter: 2013Q3

REPORT INFORMATION
  Report Type: Report from Study
  Country: ES (occurrence: ES)
  Receive Date: 20110307
  Receipt Date: 20130920
  Transmission Date: 20140515
  Serious: Yes (Other)
  Sender: FDA-Public Use
  Company Number: ES-ROCHE-762888

PATIENT
  Sex: 0

DRUGS (2)
  1. BEVACIZUMAB [Suspect]
     Indication: NEUROENDOCRINE TUMOUR
     Dosage: ON DAY 1 OF THE 1ST WEEK. ONE CYCLE WAS DEFINED AS 4 WEEKS OF TREATMENT (28 DAYS)
     Route: 042
  2. SORAFENIB [Suspect]
     Indication: NEUROENDOCRINE TUMOUR
     Dosage: ON DAYS 1-5 OF EVERY WEEK
     Route: 048

REACTIONS (12)
  - Palmar-plantar erythrodysaesthesia syndrome [Unknown]
  - Asthenia [Unknown]
  - Hypertension [Unknown]
  - Mucosal inflammation [Unknown]
  - Diarrhoea [Unknown]
  - Dysphonia [Unknown]
  - Decreased appetite [Unknown]
  - Abdominal pain [Unknown]
  - Blood phosphorus decreased [Unknown]
  - Pruritus [Unknown]
  - Constipation [Unknown]
  - Arterial thrombosis [Unknown]
